FAERS Safety Report 11215649 (Version 5)
Quarter: 2019Q1

REPORT INFORMATION
  Report Type: Spontaneous
  Country: US (occurrence: US)
  Receive Date: 20150624
  Receipt Date: 20190314
  Transmission Date: 20190417
  Serious: Yes (Other)
  Sender: FDA-Public Use
  Company Number: US-PFIZER INC-2015206793

PATIENT
  Age: 70 Year
  Sex: Female
  Weight: 57 kg

DRUGS (72)
  1. AMITRIPTYLINE [Concomitant]
     Active Substance: AMITRIPTYLINE
     Dosage: 50 MG, UNK
  2. LOSARTAN. [Concomitant]
     Active Substance: LOSARTAN
     Dosage: 50 MG, UNK
  3. NEVANAC [Concomitant]
     Active Substance: NEPAFENAC
     Dosage: 0.1 % EYE DROPS SUSPENSION
  4. POLYMYXIN B SULFATE - TRIMETHOPRIM [Concomitant]
     Dosage: UNK,(POLYMYXIN B SULFATE 10,000 UNIT-TRIMETHOPRIM 1 MG/ML)
  5. TRIAMCINOLONE ACETONIDE. [Concomitant]
     Active Substance: TRIAMCINOLONE ACETONIDE
     Dosage: 0.1 %, TOPICAL CREAM
     Route: 061
  6. ZOFRAN ODT [Concomitant]
     Active Substance: ONDANSETRON HYDROCHLORIDE
     Dosage: 8 MG, 3X/DAY (EVERY 8 HOURS AS NEEDED)
     Route: 048
  7. JANUVIA [Concomitant]
     Active Substance: SITAGLIPTIN PHOSPHATE
     Dosage: 100 MG, UNK
  8. SUBSYS [Concomitant]
     Active Substance: FENTANYL
     Dosage: AS NEEDED (1 SPRAY(S) EVERY 6 HOURS )
     Route: 060
  9. DOXYCYCLINE HYCLATE. [Concomitant]
     Active Substance: DOXYCYCLINE HYCLATE
     Dosage: 100 MG, UNK
  10. AZITHROMYCIN ANHYDROUS. [Concomitant]
     Active Substance: AZITHROMYCIN ANHYDROUS
     Dosage: 250 MG, UNK
  11. HALOBETASOL PROPIONATE. [Concomitant]
     Active Substance: HALOBETASOL PROPIONATE
     Dosage: 0.05 %, TOPICAL CREAM
     Route: 061
  12. LEVOFLOXACIN. [Concomitant]
     Active Substance: LEVOFLOXACIN
     Dosage: 500 MG, UNK
  13. MORPHINE ER [Concomitant]
     Active Substance: MORPHINE
     Dosage: 300 MG, 3X/DAY (EVERY 8 HOURS)
     Route: 048
  14. MORPHINE ER [Concomitant]
     Active Substance: MORPHINE
     Dosage: 600 MG, 2X/DAY (EVERY 12 HOURS)
     Route: 048
  15. OMEPRAZOLE. [Concomitant]
     Active Substance: OMEPRAZOLE
     Dosage: 40 MG, UNK
  16. PRAVASTATIN. [Concomitant]
     Active Substance: PRAVASTATIN
     Dosage: 40 MG, UNK
  17. PREDNISONE. [Concomitant]
     Active Substance: PREDNISONE
     Dosage: 10 MG, UNK
  18. OXYCODONE - ACETAMINOPHEN [Concomitant]
     Active Substance: ACETAMINOPHEN\OXYCODONE HYDROCHLORIDE
     Dosage: 1 DF, OXYCODONE 5MG - ACETAMINOPHEN 325MG,
  19. NOVOLOG [Concomitant]
     Active Substance: INSULIN ASPART
     Dosage: 100 UNIT/ML
     Route: 058
  20. CLOTRIMAZOLE - BETAMETHASONE [Concomitant]
     Dosage: CLOTRIMAZOLE - BETAMETHASONE 1 - 0.05% TOPICAL CREAM
     Route: 061
  21. LOVASTATIN. [Concomitant]
     Active Substance: LOVASTATIN
     Dosage: 40 MG, UNK
  22. OXYBUTYNIN CHLORIDE. [Concomitant]
     Active Substance: OXYBUTYNIN CHLORIDE
     Dosage: 5 MG, AS NEEDED
     Route: 048
  23. PNEUMOVAX 23 [Concomitant]
     Active Substance: PNEUMOCOCCAL VACCINE, POLYVALENT 23
     Dosage: 25 MCG/0.5 ML INJECTION SOLUTION
  24. VENTOLIN HFA [Concomitant]
     Active Substance: ALBUTEROL SULFATE
     Dosage: 90MCG/ ACTUATION AEROSOL INHALER
  25. GENTAMICIN. [Concomitant]
     Active Substance: GENTAMICIN
     Dosage: 0.1 %, UNK
     Route: 061
  26. HUMALOG [Concomitant]
     Active Substance: INSULIN LISPRO
     Dosage: 100 UNIT/ML
     Route: 058
  27. COLLAGENASE SANTYL [Concomitant]
     Active Substance: COLLAGENASE CLOSTRIDIUM HISTOLYTICUM
     Dosage: 250 UNIT/GRAM
     Route: 061
  28. SILVER SULFADIAZIN [Concomitant]
     Active Substance: SILVER SULFADIAZINE
     Dosage: 1 %, UNK
     Route: 061
  29. SUBSYS [Concomitant]
     Active Substance: FENTANYL
     Dosage: AS NEEDED(1 SPRAY(S) EVERY 4 HOURS )
     Route: 060
  30. BETAMETHASONE. [Concomitant]
     Active Substance: BETAMETHASONE
     Dosage: AUGMENTED 0.05% TOPICAL CREAM
     Route: 061
  31. COMBIVENT [Concomitant]
     Active Substance: ALBUTEROL SULFATE\IPRATROPIUM BROMIDE
     Dosage: [IPRATROPIUM BROMIDE 18MCG]/[SALBUTAMOL SULFATE 103MCG]/ACTUATION AEROSOL INHALER
  32. KETOCONAZOLE. [Concomitant]
     Active Substance: KETOCONAZOLE
     Dosage: 200 MG, UNK
  33. LANTUS [Concomitant]
     Active Substance: INSULIN GLARGINE
     Dosage: 100 UNIT/ML SUBCUTANEOUS SOLUTION
     Route: 058
  34. LISINOPRIL. [Concomitant]
     Active Substance: LISINOPRIL
     Dosage: 10 MG, UNK
  35. MELOXICAM. [Concomitant]
     Active Substance: MELOXICAM
     Dosage: 7.5 MG, UNK
  36. NOVOLOG MIX 70/30 [Concomitant]
     Active Substance: INSULIN ASPART
     Dosage: INSULIN ASPART 70/ PROTAMINE 30, 100 UNIT/ML SUBCUTANEOUS SOLUTION
     Route: 058
  37. OXYCODONE [Concomitant]
     Active Substance: OXYCODONE
     Dosage: 15 MG, AS NEEDED (1 TABLET(S) EVERY 6 HOURS)
     Route: 048
  38. SOTALOL. [Concomitant]
     Active Substance: SOTALOL
     Dosage: 80 MG, UNK
  39. WARFARIN [Concomitant]
     Active Substance: WARFARIN
     Dosage: 5 MG, UNK
  40. LYRICA [Suspect]
     Active Substance: PREGABALIN
     Indication: PAIN
     Dosage: 150 MG, 3X/DAY
     Route: 048
     Dates: start: 2012
  41. METFORMIN HYDROCHLORIDE. [Concomitant]
     Active Substance: METFORMIN HYDROCHLORIDE
     Dosage: 1000 MG, UNK
  42. METFORMIN ER [Concomitant]
     Active Substance: METFORMIN HYDROCHLORIDE
     Dosage: 500 MG, UNK
  43. CLINDAMYCIN. [Concomitant]
     Active Substance: CLINDAMYCIN
     Dosage: 300 MG, UNK
  44. DUREZOL [Concomitant]
     Active Substance: DIFLUPREDNATE
     Dosage: 0.05 %, UNK
  45. OXYCODONE [Concomitant]
     Active Substance: OXYCODONE
     Dosage: 15 MG, 4X/DAY (EVERY 6 HOURS AS NEED)
     Route: 048
  46. METFORMIN [Concomitant]
     Active Substance: METFORMIN HYDROCHLORIDE
     Dosage: 500 MG, UNK
  47. ONDANSETRON [Concomitant]
     Active Substance: ONDANSETRON
     Dosage: 8 MG, AS NEEDED (1 TABLET(S) TWICE A DAY BY TRANSLINGUAL ROUTE )
  48. TRIAMCINOLONE ACETONIDE. [Concomitant]
     Active Substance: TRIAMCINOLONE ACETONIDE
     Dosage: 0.5 %, UNK
     Route: 061
  49. LYRICA [Suspect]
     Active Substance: PREGABALIN
     Indication: DIABETIC NEUROPATHY
     Dosage: 100 MG, 3X/DAY
     Route: 048
     Dates: start: 20111219
  50. CIPROFLOXACIN. [Concomitant]
     Active Substance: CIPROFLOXACIN
     Dosage: 250 MG, UNK
  51. BACLOFEN. [Concomitant]
     Active Substance: BACLOFEN
     Dosage: 10 MG, UNK
  52. FLUTICASONE. [Concomitant]
     Active Substance: FLUTICASONE
     Dosage: 50 MCG/ ACTUATION
     Route: 045
  53. INSULIN [Concomitant]
     Active Substance: INSULIN NOS
     Dosage: INSULIN SYRINGE - NEEDLE U -100 1ML 30 GAUGE X 7/16
  54. METRONIDAZOLE. [Concomitant]
     Active Substance: METRONIDAZOLE
     Dosage: 500 MG, UNK
  55. NITROFURANTOIN MONOHYDRATE/MACROCRYSTAL [Concomitant]
     Dosage: 100 MG, UNK
  56. WARFARIN [Concomitant]
     Active Substance: WARFARIN
     Dosage: 7.5 MG, UNK
  57. NORTRIPTYLINE [Concomitant]
     Active Substance: NORTRIPTYLINE
     Dosage: 50 MG, UNK
  58. PROMETHAZINE [Concomitant]
     Active Substance: PROMETHAZINE\PROMETHAZINE HYDROCHLORIDE
     Dosage: 25 MG, AS NEEDED (1 TABLET(S) TWICE A DAY )
     Route: 048
  59. TOUJEO [Concomitant]
     Active Substance: INSULIN GLARGINE
     Dosage: 300 UNIT/ML (1.5 ML)
  60. AMLODIPINE [Concomitant]
     Active Substance: AMLODIPINE BESYLATE
     Dosage: 5 MG, UNK
  61. LEVETIRACETAM. [Concomitant]
     Active Substance: LEVETIRACETAM
     Dosage: 500 MG, UNK
  62. TRIAMCINOLONE ACETONIDE. [Concomitant]
     Active Substance: TRIAMCINOLONE ACETONIDE
     Dosage: 0.5% TOPICAL CREAM
     Route: 061
  63. SULFAMETHOXAZOLE AND TRIMETHOPRIM [Concomitant]
     Active Substance: SULFAMETHOXAZOLE\TRIMETHOPRIM
     Dosage: UNK,(SULFAMETHOXAZOLE:800 MG; TRIMETHOPRIM:160 MG)
  64. METOPROLOL TARTRATE. [Concomitant]
     Active Substance: METOPROLOL TARTRATE
     Dosage: 25 MG, UNK
  65. CIPROFLOXACIN. [Concomitant]
     Active Substance: CIPROFLOXACIN
     Dosage: 500 MG, UNK
  66. ALBUTEROL SULFATE. [Concomitant]
     Active Substance: ALBUTEROL SULFATE
     Dosage: 1.25 MG/3ML SOLUTION FOR NEBULIZATION
  67. METHYLPREDNISOLONE. [Concomitant]
     Active Substance: METHYLPREDNISOLONE
     Dosage: 4 MG TABLETS IN A CLOSE PACK
  68. NAPROXEN. [Concomitant]
     Active Substance: NAPROXEN
     Dosage: 500 MG, UNK
  69. PRAVASTATIN. [Concomitant]
     Active Substance: PRAVASTATIN
     Dosage: 80 MG, UNK
  70. WARFARIN [Concomitant]
     Active Substance: WARFARIN
     Dosage: 2 MG, UNK
  71. ALENDRONATE [Concomitant]
     Active Substance: ALENDRONATE SODIUM
     Dosage: 70 MG, UNK
  72. REA-LO [Concomitant]
     Dosage: UNK (40)
     Route: 061

REACTIONS (5)
  - Memory impairment [Unknown]
  - Abnormal behaviour [Unknown]
  - Loss of personal independence in daily activities [Unknown]
  - Gait disturbance [Unknown]
  - Disturbance in attention [Unknown]
